FAERS Safety Report 4560815-6 (Version None)
Quarter: 2005Q1

REPORT INFORMATION
  Report Type: 
  Country: None (occurrence: None)
  Receive Date: 20050124
  Receipt Date: 20050107
  Transmission Date: 20050727
  Serious: Yes (Hospitalization)
  Sender: FDA-Public Use
  Company Number: 29872

PATIENT
  Age: 63 Year
  Sex: Female

DRUGS (3)
  1. BSS PLUS [Suspect]
     Indication: SURGERY
     Dosage: SEE IMAGE
     Route: 031
     Dates: start: 20041125, end: 20041125
  2. BSS PLUS [Suspect]
     Indication: SURGERY
     Dosage: SEE IMAGE
     Route: 031
     Dates: start: 20041125, end: 20041125
  3. BSS PLUS [Suspect]
     Indication: SURGERY
     Route: 031

REACTIONS (5)
  - ANTERIOR CHAMBER FIBRIN [None]
  - CORNEAL OEDEMA [None]
  - HYPOPYON [None]
  - MEDICAL DEVICE COMPLICATION [None]
  - POST PROCEDURAL COMPLICATION [None]
